FAERS Safety Report 13309072 (Version 1)
Quarter: 2017Q1

REPORT INFORMATION
  Report Type: Spontaneous
  Country: US (occurrence: US)
  Receive Date: 20170309
  Receipt Date: 20170309
  Transmission Date: 20170428
  Serious: Yes (Other)
  Sender: FDA-Public Use
  Company Number: None

PATIENT
  Age: 52 Year
  Sex: Male
  Weight: 140.1 kg

DRUGS (10)
  1. VIAGRA [Concomitant]
     Active Substance: SILDENAFIL CITRATE
  2. IRON [Concomitant]
     Active Substance: IRON
  3. VITAMIN D3 [Concomitant]
     Active Substance: CHOLECALCIFEROL
  4. BASAGLAR [Suspect]
     Active Substance: INSULIN GLARGINE
     Indication: INSULIN-REQUIRING TYPE 2 DIABETES MELLITUS
     Dosage: ?          QUANTITY:54 UNITS;?
     Route: 058
     Dates: start: 20170122, end: 20170307
  5. BABY ASPIRIN [Concomitant]
     Active Substance: ASPIRIN
  6. CARVIDILOL [Concomitant]
  7. FUROSIMIDE (LASIX) [Concomitant]
  8. CALCIUM [Concomitant]
     Active Substance: CALCIUM
  9. ALBUTEROL INHALER [Concomitant]
     Active Substance: ALBUTEROL
  10. LIPITOR [Concomitant]
     Active Substance: ATORVASTATIN CALCIUM

REACTIONS (5)
  - Heart rate increased [None]
  - Drug ineffective [None]
  - Thrombosis in device [None]
  - Dizziness [None]
  - Somnolence [None]

NARRATIVE: CASE EVENT DATE: 20170301
